FAERS Safety Report 7418782-3 (Version None)
Quarter: 2011Q2

REPORT INFORMATION
  Report Type: 
  Country: None (occurrence: None)
  Receive Date: 20110415
  Receipt Date: 20110401
  Transmission Date: 20111010
  Serious: Yes (Other)
  Sender: FDA-Public Use
  Company Number: US-CELGENEUS-163-21880-11040269

PATIENT
  Sex: Female
  Weight: 65.83 kg

DRUGS (9)
  1. REVLIMID [Suspect]
     Indication: MULTIPLE MYELOMA
     Dosage: 25 MILLIGRAM
     Route: 048
     Dates: start: 20070101
  2. EVISTA [Concomitant]
     Route: 065
  3. DEXAMETHASONE [Concomitant]
     Route: 065
  4. LEXAPRO [Concomitant]
     Route: 065
  5. AVALIDE [Concomitant]
     Route: 065
  6. KLOR-CON [Concomitant]
     Route: 065
  7. MULTI-VITAMINS [Concomitant]
     Route: 065
  8. CALCIUM + VITAMIN D [Concomitant]
     Route: 065
  9. LIPITOR [Concomitant]
     Route: 065

REACTIONS (1)
  - GASTRIC ULCER [None]
